FAERS Safety Report 22620733 (Version 1)
Quarter: 2023Q2

REPORT INFORMATION
  Report Type: Spontaneous
  Country: US (occurrence: US)
  Receive Date: 20230620
  Receipt Date: 20230620
  Transmission Date: 20230721
  Serious: Yes (Other)
  Sender: FDA-Public Use
  Company Number: US-AMERICAN REGENT INC-2023001456

PATIENT
  Age: 68 Year
  Sex: Female

DRUGS (4)
  1. LEVETIRACETAM [Suspect]
     Active Substance: LEVETIRACETAM
     Indication: Seizure
     Dosage: UNK
     Route: 065
     Dates: start: 202001
  2. LACOSAMIDE [Suspect]
     Active Substance: LACOSAMIDE
     Indication: Seizure
     Dosage: UNK
     Route: 065
     Dates: start: 202001
  3. VORICONAZOLE [Concomitant]
     Active Substance: VORICONAZOLE
     Indication: Phaeohyphomycosis
     Dosage: 6 MG/KG
     Route: 042
     Dates: start: 202001
  4. VORICONAZOLE [Concomitant]
     Active Substance: VORICONAZOLE
     Indication: Central nervous system fungal infection

REACTIONS (2)
  - Drug ineffective [Unknown]
  - Seizure [Unknown]

NARRATIVE: CASE EVENT DATE: 20200101
